FAERS Safety Report 6035726-X (Version None)
Quarter: 2009Q1

REPORT INFORMATION
  Report Type: 
  Country: None (occurrence: None)
  Receive Date: 20090113
  Receipt Date: 20090105
  Transmission Date: 20090719
  Serious: Yes (Death, Hospitalization, Other)
  Sender: FDA-Public Use
  Company Number: US-AMGEN-QUU322574

PATIENT
  Sex: Female
  Weight: 130.3 kg

DRUGS (7)
  1. ENBREL [Suspect]
     Indication: RHEUMATOID ARTHRITIS
     Dates: start: 20040304, end: 20071001
  2. PLAQUENIL [Concomitant]
  3. VIOXX [Concomitant]
  4. PREDNISONE TAB [Concomitant]
  5. METHOTREXATE [Concomitant]
     Dates: start: 20000418, end: 20071001
  6. UNSPECIFIED STEROIDS [Concomitant]
     Route: 014
  7. PROZAC [Concomitant]

REACTIONS (13)
  - ANAEMIA [None]
  - BIOPSY LIVER ABNORMAL [None]
  - CENTRAL NERVOUS SYSTEM LYMPHOMA [None]
  - DEATH [None]
  - DIPLOPIA [None]
  - DRUG INEFFECTIVE [None]
  - EXTRAOCULAR MUSCLE PARESIS [None]
  - INFECTION [None]
  - KNEE ARTHROPLASTY [None]
  - MALAISE [None]
  - MUSCULAR WEAKNESS [None]
  - RHEUMATOID ARTHRITIS [None]
  - TUBERCULOSIS [None]
